FAERS Safety Report 15284250 (Version 1)
Quarter: 2018Q4

REPORT INFORMATION
  Report Type: Spontaneous
  Country: ES (occurrence: ES)
  Receive Date: 20180816
  Receipt Date: 20180816
  Transmission Date: 20190204
  Serious: Yes (Hospitalization)
  Sender: FDA-Public Use
  Company Number: ES-TEVA-2018-ES-943634

PATIENT
  Age: 85 Year
  Sex: Female

DRUGS (1)
  1. AMOXICILINA CLAVULANICO 875/125 [Suspect]
     Active Substance: AMOXICILLIN\CLAVULANIC ACID
     Indication: OTITIS MEDIA ACUTE
     Dosage: 3 DOSAGE FORMS DAILY;
     Route: 048
     Dates: start: 20171107, end: 20171113

REACTIONS (1)
  - Hepatitis acute [Recovered/Resolved]

NARRATIVE: CASE EVENT DATE: 20171112
